FAERS Safety Report 6881398-1 (Version None)
Quarter: 2010Q3

REPORT INFORMATION
  Report Type: 
  Country: None (occurrence: None)
  Receive Date: 20100728
  Receipt Date: 20100728
  Transmission Date: 20110219
  Serious: Yes (Other)
  Sender: FDA-Public Use
  Company Number: None

PATIENT
  Sex: Male

DRUGS (1)
  1. SERTRALINE HYDROCHLORIDE [Suspect]
     Indication: SCHIZOPHRENIA
     Dosage: 1 TABLET DAILY PO
     Route: 048
     Dates: start: 20090727, end: 20100527

REACTIONS (2)
  - DIPLOPIA [None]
  - VISION BLURRED [None]
